FAERS Safety Report 5934782-4 (Version None)
Quarter: 2008Q4

REPORT INFORMATION
  Report Type: 
  Country: None (occurrence: None)
  Receive Date: 20081029
  Receipt Date: 20081015
  Transmission Date: 20090506
  Serious: Yes (Life-Threatening)
  Sender: FDA-Public Use
  Company Number: ZA-GENENTECH-269738

PATIENT
  Sex: Male

DRUGS (1)
  1. MABTHERA [Suspect]
     Indication: NEPHRITIS
     Dosage: 1 G, UNK
     Route: 065

REACTIONS (4)
  - HYPERTENSION [None]
  - NEPHRITIS [None]
  - RENAL FAILURE [None]
  - SERUM SICKNESS [None]
